FAERS Safety Report 8915828 (Version 1)
Quarter: 2012Q4

REPORT INFORMATION
  Report Type: 
  Country: US (occurrence: US)
  Receive Date: 20121119
  Receipt Date: 20121119
  Transmission Date: 20130627
  Serious: No
  Sender: FDA-Public Use
  Company Number: US-PFIZER INC-2012287470

PATIENT
  Age: 47 Year
  Sex: Female
  Weight: 82 kg

DRUGS (1)
  1. LYRICA [Suspect]
     Indication: NERVE COMPRESSION
     Dosage: 100 mg, once
     Dates: start: 20121114, end: 20121114

REACTIONS (4)
  - Heart rate decreased [Unknown]
  - Confusional state [Unknown]
  - Emotional disorder [Unknown]
  - Mood swings [Unknown]
